FAERS Safety Report 9390315 (Version 2)
Quarter: 2013Q3

REPORT INFORMATION
  Report Type: Spontaneous
  Country: BR (occurrence: BR)
  Receive Date: 20130709
  Receipt Date: 20130711
  Transmission Date: 20140515
  Serious: Yes (Death, Other)
  Sender: FDA-Public Use
  Company Number: BR-AMGEN-BRASP2012043242

PATIENT
  Age: 58 Year
  Sex: Female
  Weight: 76 kg

DRUGS (17)
  1. ENBREL [Suspect]
     Indication: RHEUMATOID ARTHRITIS
     Dosage: 50 MG, ONCE WEEKLY
     Route: 065
     Dates: start: 201103, end: 201305
  2. ENBREL [Suspect]
     Dosage: 50 MG, QWK
     Route: 058
     Dates: start: 201203
  3. ARAVA [Concomitant]
     Dosage: UNK
  4. TYLEX                              /00116401/ [Concomitant]
     Dosage: UNK
  5. CHLOROQUINE [Concomitant]
     Dosage: UNK
  6. LYRICA [Concomitant]
     Dosage: UNK
  7. CHLORTALIDONE [Concomitant]
     Dosage: UNK
  8. LOSARTAN [Concomitant]
     Dosage: UNK
  9. ONGLYZA [Concomitant]
     Dosage: UNK
  10. OLCADIL [Concomitant]
     Dosage: UNK
  11. DIAZEPAM [Concomitant]
     Dosage: UNK
  12. AMOXICILLIN [Concomitant]
     Dosage: UNK
  13. ACTOS [Concomitant]
     Dosage: UNK
  14. DEPURA [Concomitant]
     Dosage: UNK
  15. CALCIO D [Concomitant]
     Dosage: UNK
  16. ALGINAC [Concomitant]
  17. HYDROCHLOROTHIAZIDE [Concomitant]

REACTIONS (2)
  - Infarction [Fatal]
  - Injection site pain [Unknown]
